FAERS Safety Report 13134803 (Version 1)
Quarter: 2017Q1

REPORT INFORMATION
  Report Type: Spontaneous
  Country: US (occurrence: US)
  Receive Date: 20170120
  Receipt Date: 20170120
  Transmission Date: 20170428
  Serious: Yes (Other)
  Sender: FDA-Public Use
  Company Number: US-JAZZ-2014-US-004179

PATIENT
  Sex: Female
  Weight: 72.56 kg

DRUGS (4)
  1. XYREM [Suspect]
     Active Substance: SODIUM OXYBATE
     Indication: SLEEP DISORDER
     Dosage: 3 G, BID
     Route: 048
     Dates: start: 200511, end: 2005
  2. NORCO [Concomitant]
     Active Substance: ACETAMINOPHEN\HYDROCODONE BITARTRATE
     Indication: ARTHRALGIA
     Dosage: UNK
  3. XYREM [Suspect]
     Active Substance: SODIUM OXYBATE
     Dosage: 4.5 G, BID
     Route: 048
     Dates: start: 200609
  4. XYREM [Suspect]
     Active Substance: SODIUM OXYBATE
     Dosage: DOSE ADJUSTMENTS
     Route: 048

REACTIONS (7)
  - Road traffic accident [Recovering/Resolving]
  - Off label use [Unknown]
  - Anxiety [Not Recovered/Not Resolved]
  - Ligament disorder [Unknown]
  - Insomnia [Not Recovered/Not Resolved]
  - Cartilage injury [Unknown]
  - Surgery [Unknown]

NARRATIVE: CASE EVENT DATE: 2007
